FAERS Safety Report 6825298-1 (Version None)
Quarter: 2010Q3

REPORT INFORMATION
  Report Type: 
  Country: None (occurrence: None)
  Receive Date: 20100708
  Receipt Date: 20061207
  Transmission Date: 20110219
  Serious: No
  Sender: FDA-Public Use
  Company Number: US-PFIZER INC-2006153681

PATIENT
  Sex: Male
  Weight: 54.43 kg

DRUGS (4)
  1. CHANTIX [Suspect]
     Indication: SMOKING CESSATION THERAPY
     Dates: start: 20061121
  2. PROZAC [Concomitant]
  3. ESTROGENS [Concomitant]
  4. VITAMINS [Concomitant]

REACTIONS (2)
  - FORMICATION [None]
  - PRURITUS [None]
